FAERS Safety Report 5144633-6 (Version None)
Quarter: 2006Q4

REPORT INFORMATION
  Report Type: 
  Country: None (occurrence: None)
  Receive Date: 20061031
  Receipt Date: 20061016
  Transmission Date: 20070319
  Serious: Yes (Hospitalization)
  Sender: FDA-Public Use
  Company Number: PL-2006-025828

PATIENT
  Age: 28 Year
  Sex: Male

DRUGS (1)
  1. BETASERON [Suspect]
     Indication: MULTIPLE SCLEROSIS
     Dosage: 250 UG, EVERY 2D, SUBCUTANEOUS
     Route: 058
     Dates: start: 20040928

REACTIONS (5)
  - BACK PAIN [None]
  - DERMAL CYST [None]
  - MULTIPLE SCLEROSIS [None]
  - MUSCULAR WEAKNESS [None]
  - URINARY RETENTION [None]
